FAERS Safety Report 17199495 (Version 1)
Quarter: 2019Q4

REPORT INFORMATION
  Report Type: Spontaneous
  Country: FR (occurrence: FR)
  Receive Date: 20191226
  Receipt Date: 20191226
  Transmission Date: 20200122
  Serious: Yes (Hospitalization)
  Sender: FDA-Public Use
  Company Number: FR-ACCORD-167099

PATIENT
  Age: 51 Year
  Sex: Female

DRUGS (2)
  1. CLOZAPINE. [Suspect]
     Active Substance: CLOZAPINE
     Indication: SCHIZOPHRENIA
     Route: 048
     Dates: end: 20190924
  2. TERCIAN [Interacting]
     Active Substance: CYAMEMAZINE
     Indication: SCHIZOPHRENIA
     Route: 048
     Dates: end: 20190911

REACTIONS (3)
  - Orthostatic hypotension [Recovered/Resolved]
  - Drug interaction [Unknown]
  - Electrocardiogram QT prolonged [Recovered/Resolved]

NARRATIVE: CASE EVENT DATE: 20190911
